FAERS Safety Report 10656935 (Version 4)
Quarter: 2015Q1

REPORT INFORMATION
  Report Type: Spontaneous
  Country: US (occurrence: None)
  Receive Date: 20141215
  Receipt Date: 20150130
  Transmission Date: 20150720
  Serious: Yes (Death, Other)
  Sender: FDA-Public Use
  Company Number: ADR-2014-02319

PATIENT
  Age: 43 Year
  Sex: Female

DRUGS (1)
  1. BACLOFEN INTRATHECAL [Suspect]
     Active Substance: BACLOFEN
     Indication: MUSCLE SPASTICITY

REACTIONS (5)
  - Respiratory failure [None]
  - Cardio-respiratory arrest [None]
  - Multiple sclerosis [None]
  - Device infusion issue [None]
  - Device malfunction [None]

NARRATIVE: CASE EVENT DATE: 20141201
